FAERS Safety Report 8551755 (Version 2)
Quarter: 2012Q4

REPORT INFORMATION
  Report Type: 
  Country: US (occurrence: US)
  Receive Date: 20120508
  Receipt Date: 20121015
  Transmission Date: 20130627
  Serious: Yes (Other)
  Sender: FDA-Public Use
  Company Number: US-JNJFOC-20120402713

PATIENT

DRUGS (6)
  1. RISPERIDONE [Suspect]
     Indication: SCHIZOAFFECTIVE DISORDER
     Dosage: on days 1 and 2
     Route: 048
  2. RISPERIDONE [Suspect]
     Indication: SCHIZOAFFECTIVE DISORDER
     Dosage: beginning with day 8 dosing could be adjusted to between 2 and 6 mg/day.
     Route: 048
  3. RISPERIDONE [Suspect]
     Indication: SCHIZOAFFECTIVE DISORDER
     Dosage: on day 3
     Route: 048
  4. RISPERIDONE [Suspect]
     Indication: SCHIZOPHRENIA
     Dosage: on days 1 and 2
     Route: 048
  5. RISPERIDONE [Suspect]
     Indication: SCHIZOPHRENIA
     Dosage: beginning with day 8 dosing could be adjusted to between 2 and 6 mg/day.
     Route: 048
  6. RISPERIDONE [Suspect]
     Indication: SCHIZOPHRENIA
     Dosage: on day 3
     Route: 048

REACTIONS (24)
  - Electrocardiogram QT prolonged [Unknown]
  - Psychotic disorder [Unknown]
  - Suicidal ideation [Unknown]
  - Insomnia [Unknown]
  - Akathisia [Unknown]
  - Somnolence [Unknown]
  - Schizophrenia [Unknown]
  - Nausea [Unknown]
  - Weight increased [Unknown]
  - Blood prolactin abnormal [Unknown]
  - Headache [Unknown]
  - Condition aggravated [Unknown]
  - Sedation [Unknown]
  - Anxiety [Unknown]
  - Weight decreased [Unknown]
  - Dizziness [Unknown]
  - Nasopharyngitis [Unknown]
  - Parkinsonism [Unknown]
  - Dystonia [Unknown]
  - Constipation [Unknown]
  - Vomiting [Unknown]
  - Blood cholesterol abnormal [Unknown]
  - Blood triglycerides abnormal [Unknown]
  - Blood insulin increased [Unknown]
